FAERS Safety Report 7044469-5 (Version None)
Quarter: 2010Q4

REPORT INFORMATION
  Report Type: 
  Country: None (occurrence: None)
  Receive Date: 20101008
  Receipt Date: 20101008
  Transmission Date: 20110411
  Serious: Yes (Other)
  Sender: FDA-Public Use
  Company Number: None

PATIENT
  Sex: Female
  Weight: 117 kg

DRUGS (9)
  1. VINORELBINE TARTRATE [Suspect]
     Indication: BREAST CANCER METASTATIC
     Dosage: 48MG WEEKLY X 3
     Dates: start: 20100818, end: 20100929
  2. SORAFENIB 200MG PO BID [Suspect]
     Indication: BREAST CANCER METASTATIC
     Dosage: 200MG BID
     Route: 048
     Dates: start: 20100818, end: 20101006
  3. CARDIA [Concomitant]
  4. CYMBALTA [Concomitant]
  5. DIOVAN [Concomitant]
  6. HYDROCHLOROTHIAZIDE [Concomitant]
  7. POTASSIUM CHLORIDE [Concomitant]
  8. TYLENOL PRN [Concomitant]
  9. XANAX [Concomitant]

REACTIONS (2)
  - NEUTROPENIA [None]
  - PULMONARY EMBOLISM [None]
